FAERS Safety Report 5403999-X (Version None)
Quarter: 2007Q3

REPORT INFORMATION
  Report Type: 
  Country: None (occurrence: None)
  Receive Date: 20070802
  Receipt Date: 20070727
  Transmission Date: 20080115
  Serious: Yes (Life-Threatening, Hospitalization)
  Sender: FDA-Public Use
  Company Number: B0481574A

PATIENT
  Age: 67 Year
  Sex: Female
  Weight: 49 kg

DRUGS (3)
  1. AUGMENTIN '125' [Suspect]
     Indication: INFECTION PROPHYLAXIS
     Dosage: 325MG THREE TIMES PER DAY
     Route: 048
     Dates: start: 20070724, end: 20070726
  2. TRAMADOL HCL [Concomitant]
     Route: 048
     Dates: start: 20070724, end: 20070726
  3. ZINACEF [Concomitant]
     Indication: INFECTION PROPHYLAXIS
     Route: 042

REACTIONS (7)
  - AURA [None]
  - CONVULSION [None]
  - HEADACHE [None]
  - LOSS OF CONSCIOUSNESS [None]
  - MONOPARESIS [None]
  - MUSCULAR WEAKNESS [None]
  - TREMOR [None]
